FAERS Safety Report 10921551 (Version 1)
Quarter: 2015Q1

REPORT INFORMATION
  Report Type: Report from Study
  Country: BE (occurrence: BE)
  Receive Date: 20150317
  Receipt Date: 20150317
  Transmission Date: 20150721
  Serious: Yes (Death, Hospitalization)
  Sender: FDA-Public Use
  Company Number: BE-ABBVIE-14P-013-1236834-00

PATIENT
  Age: 76 Year
  Sex: Male

DRUGS (8)
  1. DAFALGAN [Concomitant]
     Active Substance: ACETAMINOPHEN
     Indication: PRODUCT USED FOR UNKNOWN INDICATION
  2. STALEVO [Concomitant]
     Active Substance: CARBIDOPA\ENTACAPONE\LEVODOPA
     Indication: PARKINSON^S DISEASE
     Dosage: EMERGENCY MEDICATION: 3 TIMES A DAY
  3. DUODOPA [Suspect]
     Active Substance: CARBIDOPA\LEVODOPA
     Dosage: AM DOSE= 6ML, CONTIN DOSE= 3.1ML/H DURING 16HRS, EXTRA DOSE=1.5ML
     Route: 050
     Dates: start: 20140923, end: 20141001
  4. DUODOPA [Suspect]
     Active Substance: CARBIDOPA\LEVODOPA
     Route: 050
     Dates: end: 20140707
  5. DUODOPA [Suspect]
     Active Substance: CARBIDOPA\LEVODOPA
     Indication: PARKINSON^S DISEASE
     Dosage: AM=6ML, CONTIN DOSE=3.2ML/H DURING 16H, EXTRA DOSE=1.5ML
     Route: 050
     Dates: start: 20140505
  6. DUODOPA [Suspect]
     Active Substance: CARBIDOPA\LEVODOPA
     Dosage: DUODOPA CONTINUOUS DOSE DECREASED WITH 0.1ML
     Route: 050
     Dates: start: 20140707, end: 20140923
  7. DUODOPA [Suspect]
     Active Substance: CARBIDOPA\LEVODOPA
     Dosage: AM DOSE= 6ML, CONTIN DOSE= 2.8ML/H DURING 16HRS, EXTRA DOSE=1.5ML
     Route: 065
     Dates: start: 20141001
  8. PROLOPA [Concomitant]
     Active Substance: BENSERAZIDE\LEVODOPA
     Indication: PARKINSON^S DISEASE
     Dosage: EMERGENCY MEDICATION: ONCE A DAY

REACTIONS (18)
  - Pneumonia [Recovering/Resolving]
  - Pyrexia [Not Recovered/Not Resolved]
  - Intervertebral discitis [Fatal]
  - Decreased appetite [Unknown]
  - Candida sepsis [Fatal]
  - Dyskinesia [Recovered/Resolved]
  - General physical health deterioration [Unknown]
  - Dystonia [Unknown]
  - Freezing phenomenon [Recovered/Resolved]
  - Pleurisy [Recovering/Resolving]
  - Fatigue [Unknown]
  - Asthenia [Unknown]
  - Abdominal pain upper [Unknown]
  - Musculoskeletal stiffness [Unknown]
  - Blood pressure decreased [Recovered/Resolved]
  - Fatigue [Fatal]
  - Stoma site erythema [Recovering/Resolving]
  - Bronchitis [Recovering/Resolving]

NARRATIVE: CASE EVENT DATE: 20140506
